FAERS Safety Report 14163029 (Version 3)
Quarter: 2019Q2

REPORT INFORMATION
  Report Type: Report from Study
  Country: US (occurrence: US)
  Receive Date: 20171106
  Receipt Date: 20190430
  Transmission Date: 20190711
  Serious: Yes (Death, Hospitalization)
  Sender: FDA-Public Use
  Company Number: US-VIFOR (INTERNATIONAL) INC.-VIT-2017-11862

PATIENT
  Age: 84 Year
  Sex: Female

DRUGS (1)
  1. VELTASSA [Suspect]
     Active Substance: PATIROMER
     Indication: PRODUCT USED FOR UNKNOWN INDICATION
     Dates: start: 20170608, end: 20170724

REACTIONS (3)
  - Blood calcium increased [Unknown]
  - Blood potassium decreased [Unknown]
  - Death [Fatal]

NARRATIVE: CASE EVENT DATE: 201707
